FAERS Safety Report 12789674 (Version 4)
Quarter: 2016Q4

REPORT INFORMATION
  Report Type: Report from Study
  Country: US (occurrence: US)
  Receive Date: 20160928
  Receipt Date: 20161110
  Transmission Date: 20170207
  Serious: Yes (Hospitalization)
  Sender: FDA-Public Use
  Company Number: US-JNJFOC-20160925560

PATIENT
  Age: 59 Year
  Sex: Male

DRUGS (1)
  1. IMBRUVICA [Suspect]
     Active Substance: IBRUTINIB
     Indication: CHRONIC LYMPHOCYTIC LEUKAEMIA
     Route: 048
     Dates: start: 20160623

REACTIONS (15)
  - Infection [Unknown]
  - Pallor [Unknown]
  - Hepatomegaly [Unknown]
  - Faeces discoloured [Not Recovered/Not Resolved]
  - Pyrexia [Unknown]
  - Red blood cell count decreased [Unknown]
  - Constipation [Unknown]
  - Chills [Unknown]
  - Abdominal pain [Unknown]
  - Hepatic enzyme increased [Unknown]
  - Hypoaesthesia [Unknown]
  - Change of bowel habit [Unknown]
  - Haemoglobin decreased [Unknown]
  - Peripheral coldness [Unknown]
  - Platelet count decreased [Unknown]

NARRATIVE: CASE EVENT DATE: 20161027
